FAERS Safety Report 6249804-3 (Version None)
Quarter: 2009Q2

REPORT INFORMATION
  Report Type: 
  Country: None (occurrence: None)
  Receive Date: 20090629
  Receipt Date: 20090619
  Transmission Date: 20091009
  Serious: Yes (Other)
  Sender: FDA-Public Use
  Company Number: PHHY2009BR25078

PATIENT
  Age: 40 Year
  Sex: Female

DRUGS (2)
  1. FLOTAC [Suspect]
     Indication: BONE PAIN
     Dosage: 70 MG, 2 TABS
     Dates: start: 20090617
  2. VOLTAREN [Suspect]
     Indication: BONE PAIN
     Dosage: 2 TAB
     Route: 048

REACTIONS (2)
  - BONE PAIN [None]
  - GLUCOSE URINE [None]
